FAERS Safety Report 9883845 (Version 1)
Quarter: 2014Q1

REPORT INFORMATION
  Report Type: Spontaneous
  Country: US (occurrence: US)
  Receive Date: 20140210
  Receipt Date: 20140210
  Transmission Date: 20141002
  Serious: No
  Sender: FDA-Public Use
  Company Number: US-BAYER-2014-011804

PATIENT
  Age: 68 Year
  Sex: Female
  Weight: 90.7 kg

DRUGS (1)
  1. ESTRADIOL HEMIHYDRATE [Suspect]
     Indication: HOT FLUSH
     Dosage: 0.025 MG, OW
     Route: 062
     Dates: start: 201310, end: 201311

REACTIONS (6)
  - Product adhesion issue [None]
  - Hot flush [None]
  - Product quality issue [None]
  - Drug ineffective [None]
  - Product adhesion issue [None]
  - Product adhesion issue [None]
